FAERS Safety Report 19042036 (Version 1)
Quarter: 2021Q1

REPORT INFORMATION
  Report Type: Spontaneous
  Country: BG (occurrence: BG)
  Receive Date: 20210322
  Receipt Date: 20210322
  Transmission Date: 20210420
  Serious: Yes (Other)
  Sender: FDA-Public Use
  Company Number: BG-BAYER-2021-104561

PATIENT
  Age: 44 Year

DRUGS (4)
  1. OXAPLATIN [Concomitant]
     Active Substance: OXALIPLATIN
     Dosage: UNK
  2. CALCIUM FOLINATE [Concomitant]
     Active Substance: LEUCOVORIN CALCIUM
     Dosage: UNK
  3. NEXAVAR [Suspect]
     Active Substance: SORAFENIB
     Indication: HEPATOCELLULAR CARCINOMA
     Dosage: 800 MG DAILY
     Route: 048
     Dates: start: 201704
  4. 5 FU [Concomitant]
     Active Substance: FLUOROURACIL
     Dosage: UNK

REACTIONS (3)
  - Hepatocellular carcinoma [None]
  - Metastases to lung [None]
  - Metastases to lymph nodes [None]
